FAERS Safety Report 20892051 (Version 1)
Quarter: 2022Q2

REPORT INFORMATION
  Report Type: Spontaneous
  Country: BE (occurrence: BE)
  Receive Date: 20220530
  Receipt Date: 20220530
  Transmission Date: 20220721
  Serious: Yes (Hospitalization)
  Sender: FDA-Public Use
  Company Number: BE-NOVARTISPH-NVSC2022BE122536

PATIENT
  Age: 80 Year
  Sex: Male

DRUGS (1)
  1. GLIVEC [Suspect]
     Active Substance: IMATINIB MESYLATE
     Indication: Carcinoid tumour of the gastrointestinal tract
     Dosage: UNK
     Route: 065

REACTIONS (3)
  - Oedema [Not Recovered/Not Resolved]
  - Gene mutation [Unknown]
  - Product use in unapproved indication [Unknown]
